FAERS Safety Report 18899513 (Version 3)
Quarter: 2023Q2

REPORT INFORMATION
  Report Type: Spontaneous
  Country: US (occurrence: US)
  Receive Date: 20210216
  Receipt Date: 20230510
  Transmission Date: 20230722
  Serious: Yes (Other)
  Sender: FDA-Public Use
  Company Number: US-GILEAD-2021-0515736

PATIENT
  Sex: Female
  Weight: 71.202 kg

DRUGS (49)
  1. VIREAD [Suspect]
     Active Substance: TENOFOVIR DISOPROXIL FUMARATE
     Indication: HIV infection
     Dosage: UNK
     Route: 048
     Dates: start: 2001, end: 201412
  2. VIREAD [Suspect]
     Active Substance: TENOFOVIR DISOPROXIL FUMARATE
     Dosage: UNK
     Route: 048
     Dates: start: 2001, end: 2018
  3. CRIXIVAN [Concomitant]
     Active Substance: INDINAVIR SULFATE
  4. EPIVIR [Concomitant]
     Active Substance: LAMIVUDINE
  5. JULUCA [Concomitant]
     Active Substance: DOLUTEGRAVIR SODIUM\RILPIVIRINE HYDROCHLORIDE
  6. LEXIVA [Concomitant]
     Active Substance: FOSAMPRENAVIR CALCIUM
  7. NORVIR [Concomitant]
     Active Substance: RITONAVIR
  8. VIRACEPT [Concomitant]
     Active Substance: NELFINAVIR MESYLATE
  9. CLONIDINE [Concomitant]
     Active Substance: CLONIDINE
  10. HYDROCHLOROTHIAZIDE [Concomitant]
     Active Substance: HYDROCHLOROTHIAZIDE
  11. LEVEMIR [Concomitant]
     Active Substance: INSULIN DETEMIR
  12. NOVOLOG [Concomitant]
     Active Substance: INSULIN ASPART
  13. AMLODIPINE [Concomitant]
     Active Substance: AMLODIPINE BESYLATE
  14. LOSARTAN [Concomitant]
     Active Substance: LOSARTAN
  15. LEVOTHYROXINE [Concomitant]
     Active Substance: LEVOTHYROXINE
  16. PRAVASTATIN [Concomitant]
     Active Substance: PRAVASTATIN
  17. ASPIRIN [Concomitant]
     Active Substance: ASPIRIN
  18. DOCUSATE [Concomitant]
     Active Substance: DOCUSATE
  19. METOPROLOL [Concomitant]
     Active Substance: METOPROLOL
  20. INSULIN NOS [Concomitant]
     Active Substance: INSULIN NOS
  21. FENOFIBRATE [Concomitant]
     Active Substance: FENOFIBRATE
  22. ZOLPIDEM [Concomitant]
     Active Substance: ZOLPIDEM TARTRATE
  23. CYCLOBENZAPRINE [Concomitant]
     Active Substance: CYCLOBENZAPRINE
  24. FERROUS SULFATE [Concomitant]
     Active Substance: FERROUS SULFATE
  25. DIAZEPAM [Concomitant]
     Active Substance: DIAZEPAM
  26. CALCITRIOL [Concomitant]
     Active Substance: CALCITRIOL
  27. VITAMIN D NOS [Concomitant]
     Active Substance: VITAMIN D NOS
  28. OMEPRAZOLE [Concomitant]
     Active Substance: OMEPRAZOLE
  29. REPAGLINIDE [Concomitant]
     Active Substance: REPAGLINIDE
  30. PROCRIT [Concomitant]
     Active Substance: ERYTHROPOIETIN
  31. PREDNISONE [Concomitant]
     Active Substance: PREDNISONE
  32. PROPRANOLOL HYDROCHLORIDE [Concomitant]
     Active Substance: PROPRANOLOL HYDROCHLORIDE
  33. MELOXICAM [Concomitant]
     Active Substance: MELOXICAM
  34. LEUCOVORIN [Concomitant]
     Active Substance: LEUCOVORIN
  35. DARAPRIM [Concomitant]
     Active Substance: PYRIMETHAMINE
  36. REGLAN [Concomitant]
     Active Substance: METOCLOPRAMIDE HYDROCHLORIDE
  37. ALLOPURINOL [Concomitant]
     Active Substance: ALLOPURINOL
  38. GEMFIBROZIL [Concomitant]
     Active Substance: GEMFIBROZIL
  39. SULFAMETHOXAZOLE [Concomitant]
     Active Substance: SULFAMETHOXAZOLE
  40. LABETALOL [Concomitant]
     Active Substance: LABETALOL\LABETALOL HYDROCHLORIDE
  41. CARAFATE [Concomitant]
     Active Substance: SUCRALFATE
  42. LINZESS [Concomitant]
     Active Substance: LINACLOTIDE
  43. HYDRALAZINE [Concomitant]
     Active Substance: HYDRALAZINE HYDROCHLORIDE
  44. TRAZODONE [Concomitant]
     Active Substance: TRAZODONE HYDROCHLORIDE
  45. FUROSEMIDE [Concomitant]
     Active Substance: FUROSEMIDE
  46. NIFEDIPINE [Concomitant]
     Active Substance: NIFEDIPINE
  47. MECLIZINE HYDROCHLORIDE [Concomitant]
     Active Substance: MECLIZINE HYDROCHLORIDE
  48. BENZONATATE [Concomitant]
     Active Substance: BENZONATATE
  49. ATORVASTATIN [Concomitant]
     Active Substance: ATORVASTATIN

REACTIONS (6)
  - Chronic kidney disease [Not Recovered/Not Resolved]
  - Nephrogenic anaemia [Not Recovered/Not Resolved]
  - Pain [Not Recovered/Not Resolved]
  - Emotional distress [Not Recovered/Not Resolved]
  - Anxiety [Not Recovered/Not Resolved]
  - Anhedonia [Not Recovered/Not Resolved]

NARRATIVE: CASE EVENT DATE: 20080101
